FAERS Safety Report 17432692 (Version 1)
Quarter: 2020Q1

REPORT INFORMATION
  Report Type: Report from Study
  Country: None (occurrence: DE)
  Receive Date: 20200218
  Receipt Date: 20200218
  Transmission Date: 20200409
  Serious: Yes (Hospitalization)
  Sender: FDA-Public Use
  Company Number: DE-ABBVIE-20K-062-3281118-00

PATIENT
  Sex: Male

DRUGS (3)
  1. DUODOPA [Suspect]
     Active Substance: CARBIDOPA\LEVODOPA
     Dosage: MD 10,2ML CRD1 5,2ML/H, CRD2 5,6ML/H CRN 5,2ML/H ED 3,5ML
     Route: 050
     Dates: start: 2020
  2. L-THYROXIN [Concomitant]
     Active Substance: LEVOTHYROXINE SODIUM
     Indication: PRODUCT USED FOR UNKNOWN INDICATION
  3. DUODOPA [Suspect]
     Active Substance: CARBIDOPA\LEVODOPA
     Indication: PARKINSON^S DISEASE
     Dosage: MD 10,2ML CRD 5,9ML/H CRN 5,4ML/H ED 3,5ML
     Route: 050
     Dates: start: 20170223, end: 2020

REACTIONS (2)
  - Tremor [Recovering/Resolving]
  - Hyperkinesia [Not Recovered/Not Resolved]
